FAERS Safety Report 7151720-X (Version None)
Quarter: 2010Q4

REPORT INFORMATION
  Report Type: 
  Country: None (occurrence: None)
  Receive Date: 20101210
  Receipt Date: 20101126
  Transmission Date: 20110411
  Serious: Yes (Other)
  Sender: FDA-Public Use
  Company Number: PHHY2010CA79874

PATIENT
  Sex: Female

DRUGS (3)
  1. ACLASTA [Suspect]
     Indication: OSTEOPOROSIS
     Dosage: UNK
     Dates: start: 20101119
  2. CALCIUM CITRATE W/VITAMIN D NOS [Suspect]
  3. TYLENOL (CAPLET) [Concomitant]

REACTIONS (2)
  - MIGRAINE [None]
  - NAUSEA [None]
